FAERS Safety Report 7656508-9 (Version None)
Quarter: 2011Q3

REPORT INFORMATION
  Report Type: 
  Country: None (occurrence: None)
  Receive Date: 20110804
  Receipt Date: 20100914
  Transmission Date: 20111222
  Serious: No
  Sender: FDA-Public Use
  Company Number: US-BAUSCH-2010BL005239

PATIENT
  Age: 68 Year
  Sex: Male

DRUGS (1)
  1. OPCON-A [Suspect]
     Indication: EYE ALLERGY
     Route: 047
     Dates: start: 20100701, end: 20100701

REACTIONS (2)
  - DRUG INEFFECTIVE [None]
  - EYE IRRITATION [None]
